FAERS Safety Report 19216209 (Version 4)
Quarter: 2022Q2

REPORT INFORMATION
  Report Type: Report from Study
  Country: TW (occurrence: TW)
  Receive Date: 20210505
  Receipt Date: 20220621
  Transmission Date: 20220720
  Serious: Yes (Other)
  Sender: FDA-Public Use
  Company Number: TW-NOVARTISPH-NVSC2021TW096133

PATIENT
  Sex: Female

DRUGS (1)
  1. COSENTYX [Suspect]
     Active Substance: SECUKINUMAB
     Indication: Psoriatic arthropathy
     Dosage: 150 MG, PRN
     Route: 058
     Dates: start: 20180602

REACTIONS (6)
  - Hepatitis B [Unknown]
  - Tenderness [Unknown]
  - Deformity [Unknown]
  - Hypoaesthesia [Unknown]
  - Swelling [Unknown]
  - Back pain [Unknown]
